FAERS Safety Report 9601362 (Version 2)
Quarter: 2013Q4

REPORT INFORMATION
  Report Type: Spontaneous
  Country: US (occurrence: US)
  Receive Date: 20131007
  Receipt Date: 20131112
  Transmission Date: 20140711
  Serious: No
  Sender: FDA-Public Use
  Company Number: US-009507513-1309USA012600

PATIENT
  Age: 26 Year
  Sex: Female
  Weight: 63.39 kg

DRUGS (3)
  1. NEXPLANON [Suspect]
     Indication: CONTRACEPTION
     Dosage: SINGLE ROD
     Route: 059
     Dates: start: 20130918, end: 20130918
  2. NEXPLANON [Suspect]
     Dosage: SINGLE ROD
     Route: 059
     Dates: start: 20130918
  3. IMPLANON [Concomitant]
     Dosage: UNK
     Route: 059
     Dates: start: 201009, end: 20130917

REACTIONS (3)
  - Device difficult to use [Recovered/Resolved]
  - Product quality issue [Unknown]
  - No adverse event [Unknown]
